FAERS Safety Report 20208730 (Version 1)
Quarter: 2021Q4

REPORT INFORMATION
  Report Type: Spontaneous
  Country: HR (occurrence: HR)
  Receive Date: 20211220
  Receipt Date: 20211220
  Transmission Date: 20220303
  Serious: Yes (Other)
  Sender: FDA-Public Use
  Company Number: None

PATIENT
  Sex: Female

DRUGS (2)
  1. CLOZAPINE [Suspect]
     Active Substance: CLOZAPINE
     Indication: Product used for unknown indication
     Dosage: 125 MILLIGRAM, QD, (5 LEPONEXA OD 25 MG)
     Route: 048
     Dates: start: 20210613, end: 20210613
  2. VALPROATE SODIUM [Suspect]
     Active Substance: VALPROATE SODIUM
     Indication: Product used for unknown indication
     Dosage: UNK, (1 DEPAKINE NE ZNA JE LI 300 ILI 500 MG)
     Route: 048
     Dates: start: 20210613, end: 20210613

REACTIONS (4)
  - Crying [Unknown]
  - Suicide attempt [Unknown]
  - Emotional distress [Unknown]
  - Dizziness [Unknown]

NARRATIVE: CASE EVENT DATE: 20210613
